FAERS Safety Report 4284777-4 (Version None)
Quarter: 2004Q1

REPORT INFORMATION
  Report Type: 
  Country: None (occurrence: None)
  Receive Date: 20040203
  Receipt Date: 20040130
  Transmission Date: 20041129
  Serious: Yes (Death, Hospitalization)
  Sender: FDA-Public Use
  Company Number: 04-01-0170

PATIENT
  Age: 36 Year
  Sex: Male

DRUGS (2)
  1. CLOZAPINE [Suspect]
     Dosage: 500MG QD ORAL
     Route: 048
  2. LOPERAMIDE HCL [Suspect]
     Indication: DIARRHOEA
     Dosage: 6MG

REACTIONS (2)
  - PROCEDURAL COMPLICATION [None]
  - TOXIC DILATATION OF COLON [None]
